FAERS Safety Report 16352968 (Version 1)
Quarter: 2019Q2

REPORT INFORMATION
  Report Type: Spontaneous
  Country: US (occurrence: US)
  Receive Date: 20190524
  Receipt Date: 20190524
  Transmission Date: 20190711
  Serious: No
  Sender: FDA-Public Use
  Company Number: US-PFIZER INC-2018482500

PATIENT
  Age: 11 Year
  Sex: Male

DRUGS (4)
  1. GENOTROPIN MQ [Suspect]
     Active Substance: SOMATROPIN
     Indication: BLOOD GROWTH HORMONE
     Dosage: 1.2 MG, 1X/DAY
  2. GENOTROPIN MQ [Suspect]
     Active Substance: SOMATROPIN
     Indication: HYPERTONIA
  3. GENOTROPIN MQ [Suspect]
     Active Substance: SOMATROPIN
     Indication: MUSCLE MASS
     Dosage: 1.3 MG, DAILY
  4. GENOTROPIN MQ [Suspect]
     Active Substance: SOMATROPIN
     Indication: PRADER-WILLI SYNDROME

REACTIONS (4)
  - Therapeutic product effect decreased [Unknown]
  - Needle issue [Unknown]
  - Product dose omission [Unknown]
  - Device defective [Unknown]

NARRATIVE: CASE EVENT DATE: 201809
